FAERS Safety Report 8294274-7 (Version None)
Quarter: 2012Q2

REPORT INFORMATION
  Report Type: 
  Country: None (occurrence: None)
  Receive Date: 20120418
  Receipt Date: 20120411
  Transmission Date: 20120825
  Serious: Yes (Hospitalization)
  Sender: FDA-Public Use
  Company Number: RE-B.I. PHARMACEUTICALS,INC./RIDGEFIELD-2012-FF-00441FF

PATIENT
  Sex: Female
  Weight: 53 kg

DRUGS (6)
  1. OFLOXACIN [Concomitant]
     Dosage: 200 MG
  2. LANTUS [Concomitant]
     Dosage: 14 ANZ
  3. IRBESARTAN [Concomitant]
     Dosage: 300 MG
  4. PRADAXA [Suspect]
     Indication: ATRIAL FIBRILLATION
     Dosage: 220 MG
     Route: 048
     Dates: start: 20120403, end: 20120409
  5. BISOPROLOL FUMARATE [Concomitant]
     Dosage: 5 MG
  6. REPAGLINIDE [Concomitant]

REACTIONS (4)
  - EPISTAXIS [None]
  - CYSTOCELE [None]
  - METRORRHAGIA [None]
  - UTERINE PROLAPSE [None]
